FAERS Safety Report 21646865 (Version 1)
Quarter: 2022Q4

REPORT INFORMATION
  Report Type: Spontaneous
  Country: ES (occurrence: ES)
  Receive Date: 20221127
  Receipt Date: 20221127
  Transmission Date: 20230113
  Serious: Yes (Other)
  Sender: FDA-Public Use
  Company Number: None

PATIENT
  Age: 79 Year
  Sex: Male
  Weight: 64 kg

DRUGS (3)
  1. LEVOFLOXACIN [Suspect]
     Active Substance: LEVOFLOXACIN
     Indication: Pneumonia
     Dosage: 250 MILLIGRAM DAILY; LEVOFLOXACIN (2791A), DURATION : 8 DAYS
     Route: 065
     Dates: start: 20200210, end: 20200217
  2. ACETAMINOPHEN [Suspect]
     Active Substance: ACETAMINOPHEN
     Indication: Product used for unknown indication
     Dosage: 1G ON DEMAND, PARACETAMOL (12A), UNIT DOSE : 1 GRAM, DURATION : 2 DAYS
     Route: 065
     Dates: start: 20200213, end: 20200214
  3. CEFTRIAXONE [Suspect]
     Active Substance: CEFTRIAXONE
     Indication: Pneumonia
     Dosage: 2 GRAM DAILY; CEFTRIAXONE (501A), DURATION : 8 DAYS
     Route: 065
     Dates: start: 20200210, end: 20200217

REACTIONS (1)
  - Hepatocellular injury [Recovered/Resolved]

NARRATIVE: CASE EVENT DATE: 20200217
